FAERS Safety Report 13519134 (Version 3)
Quarter: 2020Q3

REPORT INFORMATION
  Report Type: Report from Study
  Country: FR (occurrence: FR)
  Receive Date: 20170505
  Receipt Date: 20170615
  Transmission Date: 20201105
  Serious: Yes (Death, Life-Threatening, Hospitalization, Other)
  Sender: FDA-Public Use
  Company Number: FR-ASTRAZENECA-2016SE55934

PATIENT
  Age: 25135 Day
  Sex: Female

DRUGS (6)
  1. TRAMADOL. [Concomitant]
     Active Substance: TRAMADOL
     Indication: MUSCULOSKELETAL CHEST PAIN
     Dosage: 100 MG QD
     Route: 048
  2. TAXOL [Suspect]
     Active Substance: PACLITAXEL
     Indication: LUNG NEOPLASM MALIGNANT
     Route: 042
     Dates: start: 20160531, end: 20160531
  3. TREMELIMUMAB. [Suspect]
     Active Substance: TREMELIMUMAB
     Indication: NON-SMALL CELL LUNG CANCER
     Dosage: 60.0MG ONCE/SINGLE ADMINISTRATION
     Route: 042
     Dates: start: 20160511, end: 20160511
  4. LEVOTHYROX [Concomitant]
     Active Substance: LEVOTHYROXINE
     Indication: HYPOTHYROIDISM
     Dosage: 50 MG QD
     Route: 048
  5. MEDI4736 [Suspect]
     Active Substance: DURVALUMAB
     Indication: NON-SMALL CELL LUNG CANCER
     Dosage: 1200.0MG ONCE/SINGLE ADMINISTRATION
     Route: 042
     Dates: start: 20160511, end: 20160511
  6. MEDI4736 [Suspect]
     Active Substance: DURVALUMAB
     Indication: NON-SMALL CELL LUNG CANCER
     Dosage: 1200.0MG ONCE/SINGLE ADMINISTRATION
     Route: 042
     Dates: start: 20160523

REACTIONS (2)
  - Pancreatitis [Not Recovered/Not Resolved]
  - Anaphylactic shock [Fatal]

NARRATIVE: CASE EVENT DATE: 20160523
